APPROVED DRUG PRODUCT: ADVIL COLD AND SINUS
Active Ingredient: IBUPROFEN; PSEUDOEPHEDRINE HYDROCHLORIDE
Strength: EQ 200MG FREE ACID AND POTASSIUM SALT;30MG
Dosage Form/Route: CAPSULE;ORAL
Application: N021374 | Product #001
Applicant: HALEON US HOLDINGS LLC
Approved: May 30, 2002 | RLD: Yes | RS: Yes | Type: OTC